FAERS Safety Report 9311182 (Version 2)
Quarter: 2013Q2

REPORT INFORMATION
  Report Type: Spontaneous
  Country: US (occurrence: US)
  Receive Date: 20130528
  Receipt Date: 20130610
  Transmission Date: 20140414
  Serious: Yes (Other)
  Sender: FDA-Public Use
  Company Number: US-SANOFI-AVENTIS-2013SA052029

PATIENT
  Age: 61 Year
  Sex: Male
  Weight: 66 kg

DRUGS (26)
  1. LANTUS SOLOSTAR [Suspect]
     Indication: TYPE 2 DIABETES MELLITUS
     Dosage: 20 UP TO 50 UNITS IN THE MORNING
     Route: 058
  2. LANTUS SOLOSTAR [Suspect]
     Indication: TYPE 2 DIABETES MELLITUS
     Dosage: 20 UP TO 50 UNITS IN THE MORNING
     Route: 058
  3. SOLOSTAR [Suspect]
     Indication: TYPE 2 DIABETES MELLITUS
  4. NOVOLOG [Concomitant]
     Dosage: BETWEEN 3-5-UNITS BREAKFAST.......3-5-UNITS LUNCH.......3-5-UNITS
  5. ATENOLOL [Concomitant]
  6. ASPIRIN [Concomitant]
  7. FUROSEMIDE [Concomitant]
  8. GABAPENTIN [Concomitant]
  9. ATORVASTATIN [Concomitant]
  10. MULTIVITAMINS [Concomitant]
  11. METFORMIN [Concomitant]
     Dosage: ONE IN MORNING...ONE IN...EVENING ...ONE
  12. TIZANIDINE [Concomitant]
     Dosage: ONE EVERY SIX HOURS
  13. OXYCODONE [Concomitant]
     Dosage: -  5 MG TAKE TWO EVERY-6 HOURS AS NEEDED?- 10-325MG TAKE ONE EVERY 6-8 HOURS AS NEEDED
  14. LISINOPRIL [Concomitant]
  15. CALCIUM [Concomitant]
     Dosage: 600 MG TWICE A DAY...MORNING ...EVENING
  16. VITAMIN D [Concomitant]
     Dosage: 600 MG TWICE A DAY...MORNING ...EVENING
  17. AMITRIPTYLINE [Concomitant]
     Dosage: 75 MG-ONCE A DAY... BED TIME
  18. VITAMIN E [Concomitant]
  19. FOLIC ACID [Concomitant]
  20. DOCUSATE SODIUM [Concomitant]
     Indication: FAECES HARD
  21. SENNA ALEXANDRINA DRY EXTRACT/SENNA ALEXANDRINA FRUIT EXTRACT [Concomitant]
  22. BUPROPION [Concomitant]
  23. CLOPIDOGREL [Concomitant]
  24. NITROSTAT [Concomitant]
  25. ALBUTEROL [Concomitant]
  26. LAXATIVES [Concomitant]

REACTIONS (12)
  - Lower limb fracture [Unknown]
  - Fall [Unknown]
  - Localised infection [Unknown]
  - Leg amputation [Unknown]
  - Weight decreased [Unknown]
  - Visual acuity reduced [Unknown]
  - Ankle fracture [Unknown]
  - Joint dislocation [Unknown]
  - Peripheral artery bypass [Unknown]
  - Cataract [Unknown]
  - Glaucoma [Unknown]
  - Tendon injury [Unknown]
